FAERS Safety Report 10482522 (Version 1)
Quarter: 2014Q3

REPORT INFORMATION
  Report Type: Spontaneous
  Country: LU (occurrence: LU)
  Receive Date: 20140929
  Receipt Date: 20140929
  Transmission Date: 20150326
  Serious: Yes (Hospitalization)
  Sender: FDA-Public Use
  Company Number: LU-ABBVIE-14K-098-1288062-00

PATIENT
  Age: 18 Year
  Sex: Male
  Weight: 65 kg

DRUGS (2)
  1. PARACETAMOL [Concomitant]
     Active Substance: ACETAMINOPHEN
     Indication: PRODUCT USED FOR UNKNOWN INDICATION
  2. HUMIRA [Suspect]
     Active Substance: ADALIMUMAB
     Indication: CROHN^S DISEASE
     Dates: start: 201211, end: 201301

REACTIONS (4)
  - Henoch-Schonlein purpura [Unknown]
  - Hypersensitivity vasculitis [Unknown]
  - Orthostatic intolerance [Unknown]
  - Joint swelling [Unknown]

NARRATIVE: CASE EVENT DATE: 201302
